FAERS Safety Report 10541512 (Version 1)
Quarter: 2014Q4

REPORT INFORMATION
  Report Type: Spontaneous
  Country: US (occurrence: None)
  Receive Date: 20141010
  Receipt Date: 20141010
  Transmission Date: 20150529
  Serious: No
  Sender: FDA-Public Use
  Company Number: 163-POMAL-14055282

PATIENT
  Age: 66 Year
  Sex: Female
  Weight: 111.13 kg

DRUGS (28)
  1. METOPROLOL [Concomitant]
     Active Substance: METOPROLOL
  2. SENNA [Concomitant]
     Active Substance: SENNA LEAF\SENNOSIDES\SENNOSIDES A AND B
  3. ASPIRIN (ACETYLSALICYLIC ACID) [Concomitant]
     Active Substance: ASPIRIN
  4. POMALYST [Suspect]
     Active Substance: POMALIDOMIDE
     Indication: PLASMA CELL MYELOMA
     Dosage: 2 MG, 21 IN 21 D, PO
     Route: 048
     Dates: start: 20131015
  5. NOVILIN (INSULIN HUMAN INJECTION, ISOPHANE) [Concomitant]
  6. CALCIUM [Concomitant]
     Active Substance: CALCIUM
  7. AREDIA (PAMIDRONATE DISODIUM) [Concomitant]
     Active Substance: PAMIDRONATE DISODIUM
  8. WELLBUTRIN [Concomitant]
     Active Substance: BUPROPION HYDROCHLORIDE
  9. MIRALAX (MACROGOL) [Concomitant]
  10. FISH OIL [Concomitant]
     Active Substance: FISH OIL
  11. MULTIVITAMINS [Concomitant]
     Active Substance: VITAMINS
  12. PERCOCET (OXYCOCET) [Concomitant]
  13. OMEPRAZOLE. [Concomitant]
     Active Substance: OMEPRAZOLE
  14. ISOSORBIDE DINITRATE. [Concomitant]
     Active Substance: ISOSORBIDE DINITRATE
  15. TYLENOL [Concomitant]
     Active Substance: ACETAMINOPHEN
  16. HUMALOG [Concomitant]
     Active Substance: INSULIN LISPRO
  17. LIPITOR [Concomitant]
     Active Substance: ATORVASTATIN CALCIUM
  18. ACYCLOVIR (ACICLOVIR) (ACICLOVIR) [Concomitant]
     Active Substance: ACYCLOVIR
  19. ALBUTEROL (SALBUTAMOL) [Concomitant]
     Active Substance: ALBUTEROL
  20. CARAFATE [Concomitant]
     Active Substance: SUCRALFATE
  21. CALCITRIOL. [Concomitant]
     Active Substance: CALCITRIOL
  22. AUGMENTIN (CLAVULIN) [Concomitant]
  23. FLUTICASONE [Concomitant]
     Active Substance: FLUTICASONE\FLUTICASONE PROPIONATE
  24. GABAPENTIN. [Concomitant]
     Active Substance: GABAPENTIN
  25. HYDRALAZINE [Concomitant]
     Active Substance: HYDRALAZINE HYDROCHLORIDE
  26. ERYTHROMYCIN. [Concomitant]
     Active Substance: ERYTHROMYCIN
  27. LIDODERM [Concomitant]
     Active Substance: LIDOCAINE
  28. COLACE [Concomitant]
     Active Substance: DOCUSATE SODIUM

REACTIONS (1)
  - Neuralgia [None]
